FAERS Safety Report 5750482-8 (Version None)
Quarter: 2008Q2

REPORT INFORMATION
  Report Type: 
  Country: None (occurrence: None)
  Receive Date: 20080523
  Receipt Date: 20080523
  Transmission Date: 20081010
  Serious: No
  Sender: FDA-Public Use
  Company Number: None

PATIENT
  Age: 12 Year
  Sex: Female
  Weight: 23.587 kg

DRUGS (2)
  1. MAXIPIME [Suspect]
     Indication: CYSTIC FIBROSIS
     Dosage: 1.5GM IV Q12
     Route: 042
     Dates: start: 20080515, end: 20080521
  2. MAXIPIME [Suspect]

REACTIONS (3)
  - PRURITUS [None]
  - RASH ERYTHEMATOUS [None]
  - RASH MACULO-PAPULAR [None]
